FAERS Safety Report 7002387-2 (Version None)
Quarter: 2010Q3

REPORT INFORMATION
  Report Type: 
  Country: None (occurrence: None)
  Receive Date: 20100920
  Receipt Date: 20090813
  Transmission Date: 20110219
  Serious: No
  Sender: FDA-Public Use
  Company Number: US-ASTRAZENECA-2009SE08286

PATIENT
  Age: 18 Year
  Sex: Male

DRUGS (2)
  1. SEROQUEL XR [Suspect]
     Route: 048
  2. KETACONAZOLE TOPICAL [Concomitant]

REACTIONS (3)
  - ENURESIS [None]
  - EUPHORIC MOOD [None]
  - SOMNOLENCE [None]
